FAERS Safety Report 13223163 (Version 1)
Quarter: 2017Q1

REPORT INFORMATION
  Report Type: Other
  Country: US (occurrence: US)
  Receive Date: 20170212
  Receipt Date: 20170212
  Transmission Date: 20170428
  Serious: No
  Sender: FDA-Public Use
  Company Number: US-ACORDA-ACO_123887_2016

PATIENT
  Age: 56 Year
  Sex: Female
  Weight: 81.63 kg

DRUGS (13)
  1. XANAX [Concomitant]
     Active Substance: ALPRAZOLAM
     Indication: PRODUCT USED FOR UNKNOWN INDICATION
     Dosage: 0.25MG, UNK
     Route: 065
     Dates: start: 20130905
  2. TYLENOL [Concomitant]
     Active Substance: ACETAMINOPHEN
     Indication: PRODUCT USED FOR UNKNOWN INDICATION
     Dosage: 325MG, UNK
     Route: 065
  3. VITAMIN B12 [Concomitant]
     Active Substance: CYANOCOBALAMIN
     Indication: PRODUCT USED FOR UNKNOWN INDICATION
     Dosage: 1000 MCG, UNK
     Route: 058
  4. AMPYRA [Suspect]
     Active Substance: DALFAMPRIDINE
     Dosage: 10 MG, BID
     Route: 048
     Dates: start: 20160504
  5. TECFIDERA [Suspect]
     Active Substance: DIMETHYL FUMARATE
     Indication: MULTIPLE SCLEROSIS
     Dosage: UNK
     Route: 048
     Dates: start: 201309
  6. VITAMIN D [Concomitant]
     Active Substance: CHOLECALCIFEROL
     Indication: PRODUCT USED FOR UNKNOWN INDICATION
     Dosage: 1000 IU, UNK
     Route: 065
  7. OREGANO SUPPLEMENT [Concomitant]
     Dosage: UNK
  8. AMPYRA [Suspect]
     Active Substance: DALFAMPRIDINE
     Dosage: 10 MG, Q 12 HRS
     Route: 065
  9. RELIVE [Concomitant]
     Indication: PRODUCT USED FOR UNKNOWN INDICATION
     Dosage: UNK
     Route: 065
  10. TRAZODONE [Concomitant]
     Active Substance: TRAZODONE HYDROCHLORIDE
     Indication: PRODUCT USED FOR UNKNOWN INDICATION
     Route: 065
  11. AMPYRA [Suspect]
     Active Substance: DALFAMPRIDINE
     Indication: GAIT DISTURBANCE
     Dosage: 10 MG, BID
     Route: 048
     Dates: start: 20130915, end: 20160503
  12. IVERMECTIN. [Suspect]
     Active Substance: IVERMECTIN
     Indication: INFECTION
     Dosage: UNK
     Route: 065
  13. GRAPE SEED OIL [Concomitant]
     Indication: PRODUCT USED FOR UNKNOWN INDICATION
     Dosage: UNK
     Route: 065

REACTIONS (7)
  - Scab [Not Recovered/Not Resolved]
  - Balance disorder [Recovering/Resolving]
  - Gait disturbance [Recovering/Resolving]
  - Insomnia [Not Recovered/Not Resolved]
  - Urticaria [Not Recovered/Not Resolved]
  - Drug dose omission [Unknown]
  - Adverse drug reaction [Unknown]

NARRATIVE: CASE EVENT DATE: 201604
